FAERS Safety Report 20282386 (Version 1)
Quarter: 2022Q1

REPORT INFORMATION
  Report Type: Spontaneous
  Country: US (occurrence: None)
  Receive Date: 20220101
  Receipt Date: 20220101
  Transmission Date: 20220424
  Serious: Yes (Hospitalization)
  Sender: FDA-Public Use
  Company Number: None

PATIENT
  Age: 57 Year
  Sex: Male
  Weight: 88 kg

DRUGS (1)
  1. EZETIMIBE [Suspect]
     Active Substance: EZETIMIBE
     Dosage: 10 MG EVERY DAY PO?
     Route: 048
     Dates: start: 20210928, end: 20211001

REACTIONS (1)
  - Angioedema [None]

NARRATIVE: CASE EVENT DATE: 20211001
